FAERS Safety Report 8286061 (Version 2)
Quarter: 2013Q1

REPORT INFORMATION
  Report Type: Spontaneous
  Country: US (occurrence: US)
  Receive Date: 20111213
  Receipt Date: 20130214
  Transmission Date: 20140127
  Serious: Yes (Other)
  Sender: FDA-Public Use
  Company Number: US-ROCHE-1021262

PATIENT
  Sex: Male
  Weight: 34.05 kg

DRUGS (2)
  1. ACCUTANE [Suspect]
     Indication: ACNE
     Route: 065
     Dates: start: 1985
  2. ACCUTANE [Suspect]
     Route: 065
     Dates: start: 198601, end: 198607

REACTIONS (5)
  - Colitis ulcerative [Unknown]
  - Inflammatory bowel disease [Unknown]
  - Depression [Unknown]
  - Injury [Unknown]
  - Haemorrhoids [Unknown]
